FAERS Safety Report 5038123-9 (Version None)
Quarter: 2006Q2

REPORT INFORMATION
  Report Type: 
  Country: None (occurrence: None)
  Receive Date: 20060602
  Receipt Date: 20060302
  Transmission Date: 20061013
  Serious: Yes (Hospitalization)
  Sender: FDA-Public Use
  Company Number: 2006-0009279

PATIENT
  Age: 60 Year
  Sex: Female

DRUGS (2)
  1. TRUVADA [Suspect]
     Indication: HIV INFECTION
     Dates: start: 20050501
  2. SUSTIVA [Suspect]
     Indication: HIV INFECTION
     Dates: start: 20050501

REACTIONS (2)
  - PANCREATITIS [None]
  - RENAL FAILURE [None]
